FAERS Safety Report 18581454 (Version 1)
Quarter: 2020Q4

REPORT INFORMATION
  Report Type: Spontaneous
  Country: AE (occurrence: AE)
  Receive Date: 20201204
  Receipt Date: 20201204
  Transmission Date: 20210114
  Serious: Yes (Hospitalization)
  Sender: FDA-Public Use
  Company Number: AE-TAKEDA-2020TUS053512

PATIENT
  Sex: Male

DRUGS (4)
  1. CYCLOSPORINE. [Concomitant]
     Active Substance: CYCLOSPORINE
     Route: 065
  2. HUMAN NORMAL IMMUNOGLOBULIN [Suspect]
     Active Substance: HUMAN IMMUNOGLOBULIN G
     Indication: KAPOSI SARCOMA INFLAMMATORY CYTOKINE SYNDROME
     Dosage: 2 GRAM PER KILOGRAM, QD, IN FOUR DAILY DIVIDED DOSES
     Route: 042
  3. GANCICLOVIR. [Concomitant]
     Active Substance: GANCICLOVIR
     Dosage: FOR 2 WEEKS
     Route: 050
  4. VALGANCICLOVIR. [Concomitant]
     Active Substance: VALGANCICLOVIR
     Indication: CYTOMEGALOVIRUS INFECTION
     Route: 048

REACTIONS (2)
  - Nephropathy [Recovering/Resolving]
  - Off label use [Unknown]
